FAERS Safety Report 12978238 (Version 1)
Quarter: 2016Q4

REPORT INFORMATION
  Report Type: Spontaneous
  Country: TW (occurrence: TW)
  Receive Date: 20161128
  Receipt Date: 20161128
  Transmission Date: 20170207
  Serious: Yes (Life-Threatening, Hospitalization, Other)
  Sender: FDA-Public Use
  Company Number: TW-GLENMARK PHARMACEUTICALS INC, USA.-2016GMK025183

PATIENT
  Age: 59 Year
  Sex: Male

DRUGS (4)
  1. DIPYRIDAMOLE. [Suspect]
     Active Substance: DIPYRIDAMOLE
     Indication: BRAIN STEM INFARCTION
     Dosage: 75 MG, BID
     Route: 065
  2. ACETYLSALICYLIC ACID [Suspect]
     Active Substance: ASPIRIN
     Indication: BRAIN STEM INFARCTION
     Dosage: 300 MG, OD
     Route: 065
  3. ACETYLSALICYLIC ACID [Suspect]
     Active Substance: ASPIRIN
     Dosage: 100 MG, UNK
     Route: 065
  4. INSULIN [Concomitant]
     Active Substance: INSULIN NOS
     Indication: HYPERGLYCAEMIA
     Dosage: UNK
     Route: 058

REACTIONS (3)
  - Haemorrhagic transformation stroke [Recovered/Resolved]
  - Brain stem haemorrhage [Recovered/Resolved]
  - Coma [Not Recovered/Not Resolved]
